FAERS Safety Report 5353839-2 (Version None)
Quarter: 2007Q2

REPORT INFORMATION
  Report Type: 
  Country: None (occurrence: None)
  Receive Date: 20070608
  Receipt Date: 20070529
  Transmission Date: 20071010
  Serious: Yes (Hospitalization, Other)
  Sender: FDA-Public Use
  Company Number: 2007SP007137

PATIENT
  Age: 63 Year
  Sex: Male

DRUGS (8)
  1. PEG-INTRON [Suspect]
     Indication: DRUG USE FOR UNKNOWN INDICATION
     Dosage: 150 MCG
     Dates: start: 20070301
  2. REBETOL [Suspect]
     Indication: DRUG USE FOR UNKNOWN INDICATION
     Dosage: 1200 MG;  PO
     Route: 048
     Dates: start: 20070301
  3. COUMADIN [Concomitant]
  4. MULTIVITAMIN  /00831701/ [Concomitant]
  5. EFFEXOR   /01233802/ [Concomitant]
  6. TRAMADOL   /00599202/ [Concomitant]
  7. PREVACID [Concomitant]
  8. LORTAB [Concomitant]

REACTIONS (15)
  - ABDOMINAL PAIN [None]
  - ANOREXIA [None]
  - ASTHENIA [None]
  - BENIGN PROSTATIC HYPERPLASIA [None]
  - CHILLS [None]
  - DIVERTICULUM INTESTINAL [None]
  - FATIGUE [None]
  - LETHARGY [None]
  - MALAISE [None]
  - NEPHRITIS [None]
  - NORMOCHROMIC NORMOCYTIC ANAEMIA [None]
  - PANCYTOPENIA [None]
  - PLATELET COUNT DECREASED [None]
  - PYELONEPHRITIS [None]
  - URINARY INCONTINENCE [None]
